FAERS Safety Report 14350010 (Version 7)
Quarter: 2018Q4

REPORT INFORMATION
  Report Type: Spontaneous
  Country: SE (occurrence: SE)
  Receive Date: 20180104
  Receipt Date: 20181010
  Transmission Date: 20190204
  Serious: Yes (Life-Threatening, Hospitalization, Other)
  Sender: FDA-Public Use
  Company Number: SE-AUROBINDO-AUR-APL-2018-000406

PATIENT
  Age: 55 Year
  Sex: Female

DRUGS (5)
  1. ATENOLOL. [Suspect]
     Active Substance: ATENOLOL
     Indication: SUICIDE ATTEMPT
     Dosage: UNK, INGESTED LARGE AMOUNTS
     Route: 048
  2. AMLODIPINE [Suspect]
     Active Substance: AMLODIPINE BESYLATE
     Indication: SUICIDE ATTEMPT
     Dosage: UNK, INGESTED LARGE AMOUNTS
     Route: 048
  3. ALCOHOL. [Suspect]
     Active Substance: ALCOHOL
     Indication: SUICIDE ATTEMPT
     Dosage: UNK, LARGE AMOUNTS
     Route: 065
  4. VENLAFAXINE [Suspect]
     Active Substance: VENLAFAXINE HYDROCHLORIDE
     Indication: SUICIDE ATTEMPT
     Dosage: LARGE QUANTITIES
     Route: 048
  5. PARACETAMOL [Suspect]
     Active Substance: ACETAMINOPHEN
     Indication: SUICIDE ATTEMPT
     Dosage: UNK, INGESTED LARGE AMOUNTS
     Route: 048

REACTIONS (15)
  - Hypokinesia [Recovered/Resolved]
  - Suicide attempt [Recovered/Resolved]
  - Toxicity to various agents [Recovered/Resolved]
  - Heart rate decreased [Recovering/Resolving]
  - Pneumonia [Recovered/Resolved with Sequelae]
  - Hypotension [Recovering/Resolving]
  - Myocardial depression [Recovered/Resolved]
  - Completed suicide [Recovered/Resolved]
  - Ejection fraction decreased [Recovered/Resolved]
  - Blood lactic acid increased [Unknown]
  - Shock [Recovering/Resolving]
  - Intentional overdose [Recovered/Resolved]
  - Loss of consciousness [Recovered/Resolved]
  - Delirium [Recovered/Resolved with Sequelae]
  - Left ventricular dysfunction [Recovered/Resolved]
